FAERS Safety Report 4836350-4 (Version None)
Quarter: 2005Q4

REPORT INFORMATION
  Report Type: 
  Country: None (occurrence: None)
  Receive Date: 20051123
  Receipt Date: 20050804
  Transmission Date: 20060501
  Serious: Yes (Death, Hospitalization)
  Sender: FDA-Public Use
  Company Number: US-ROCHE-413223

PATIENT
  Age: 62 Year
  Sex: Female
  Weight: 77.1 kg

DRUGS (5)
  1. PEGASYS [Suspect]
     Indication: HEPATITIS C
     Route: 058
     Dates: start: 20050106, end: 20050715
  2. COPEGUS [Suspect]
     Indication: HEPATITIS C
     Route: 048
     Dates: start: 20050106, end: 20050715
  3. METHADONE [Concomitant]
     Indication: PAIN
     Route: 048
     Dates: start: 20041207, end: 20050715
  4. ZOLOFT [Concomitant]
     Indication: DEPRESSION
     Dosage: DAILY DOSING.
     Route: 048
     Dates: start: 20040907, end: 20050715
  5. HUMULIN 70/30 [Concomitant]
     Indication: DIABETES MELLITUS
     Dosage: DAILY DOSING.
     Route: 058
     Dates: start: 20030209, end: 20050715

REACTIONS (3)
  - MENTAL STATUS CHANGES [None]
  - SUBARACHNOID HAEMORRHAGE [None]
  - SUBDURAL HAEMORRHAGE [None]
